FAERS Safety Report 24463243 (Version 1)
Quarter: 2024Q4

REPORT INFORMATION
  Report Type: Report from Study
  Country: US (occurrence: US)
  Receive Date: 20241018
  Receipt Date: 20241018
  Transmission Date: 20250115
  Serious: No
  Sender: ROCHE
  Company Number: US-ROCHE-3140742

PATIENT
  Age: 61 Year
  Sex: Female
  Weight: 174.0 kg

DRUGS (15)
  1. XOLAIR [Suspect]
     Active Substance: OMALIZUMAB
     Indication: Idiopathic urticaria
     Route: 058
  2. XOLAIR [Suspect]
     Active Substance: OMALIZUMAB
     Indication: Asthma
  3. ALBUTEROL SULFATE [Concomitant]
     Active Substance: ALBUTEROL SULFATE
  4. SPIRIVA [Concomitant]
     Active Substance: TIOTROPIUM BROMIDE MONOHYDRATE
  5. ACCOLATE [Concomitant]
     Active Substance: ZAFIRLUKAST
     Route: 048
  6. AZELASTINE [Concomitant]
     Active Substance: AZELASTINE
     Route: 045
  7. CETIRIZINE HYDROCHLORIDE [Concomitant]
     Active Substance: CETIRIZINE HYDROCHLORIDE
     Route: 048
  8. DICLOFENAC SODIUM [Concomitant]
     Active Substance: DICLOFENAC SODIUM
     Route: 048
  9. VITAMIN C [Concomitant]
     Active Substance: ASCORBIC ACID
  10. TRIAMCINOLONE ACETONIDE [Concomitant]
     Active Substance: TRIAMCINOLONE ACETONIDE
  11. MONTELUKAST SODIUM [Concomitant]
     Active Substance: MONTELUKAST SODIUM
     Route: 048
  12. EPINEPHRINE [Concomitant]
     Active Substance: EPINEPHRINE
  13. FAMOTIDINE [Concomitant]
     Active Substance: FAMOTIDINE
     Route: 048
  14. HYDROXYZINE [Concomitant]
     Active Substance: HYDROXYZINE HYDROCHLORIDE
     Route: 048
  15. BETAMETHASONE DIPROPIONATE [Concomitant]
     Active Substance: BETAMETHASONE DIPROPIONATE

REACTIONS (2)
  - Off label use [Unknown]
  - No adverse event [Unknown]
